FAERS Safety Report 9098238 (Version 1)
Quarter: 2013Q1

REPORT INFORMATION
  Report Type: Spontaneous
  Country: IT (occurrence: IT)
  Receive Date: 20130213
  Receipt Date: 20130213
  Transmission Date: 20140127
  Serious: Yes (Hospitalization)
  Sender: FDA-Public Use
  Company Number: PHHY2013IT012947

PATIENT
  Age: 75 Year
  Sex: Female

DRUGS (5)
  1. GABAPENTIN [Suspect]
     Dosage: 2 DF, QD POSOLOGICAL UNITS
     Route: 048
     Dates: start: 20121101, end: 20121106
  2. STILNOX [Suspect]
     Dosage: 10 MG, QD
     Route: 048
     Dates: start: 20121106, end: 20121106
  3. NOVORAPID [Concomitant]
  4. LANTUS [Concomitant]
  5. GLUCOPHAGE [Concomitant]
     Dosage: 500 MG

REACTIONS (3)
  - Fall [Unknown]
  - Vertigo [Unknown]
  - Femur fracture [Unknown]
